FAERS Safety Report 19803213 (Version 2)
Quarter: 2021Q3

REPORT INFORMATION
  Report Type: Spontaneous
  Country: US (occurrence: US)
  Receive Date: 20210908
  Receipt Date: 20210920
  Transmission Date: 20211014
  Serious: No
  Sender: FDA-Public Use
  Company Number: US-AMGEN-USASP2021137217

PATIENT
  Age: 62 Year
  Sex: Male

DRUGS (2)
  1. MVASI [Suspect]
     Active Substance: BEVACIZUMAB-AWWB
     Indication: GLIOBLASTOMA
     Dosage: 900 MILLIGRAM, Q2WK
     Route: 042
     Dates: start: 20210805
  2. MVASI [Suspect]
     Active Substance: BEVACIZUMAB-AWWB
     Dosage: UNK, 100 MG VIALS
     Route: 042

REACTIONS (1)
  - Vascular access complication [Unknown]

NARRATIVE: CASE EVENT DATE: 20210902
